FAERS Safety Report 7018945-5 (Version None)
Quarter: 2010Q3

REPORT INFORMATION
  Report Type: 
  Country: None (occurrence: None)
  Receive Date: 20100928
  Receipt Date: 20100924
  Transmission Date: 20110219
  Serious: Yes (Death)
  Sender: FDA-Public Use
  Company Number: GR-MPIJNJ-2010-04970

PATIENT

DRUGS (5)
  1. VELCADE [Suspect]
     Indication: WALDENSTROM'S MACROGLOBULINAEMIA
     Dosage: 1.3 MG/M2, CYCLIC
     Route: 042
  2. VELCADE [Suspect]
     Dosage: 1.6 MG/M2, CYCLIC
     Route: 042
  3. DEXAMETHASONE [Suspect]
     Indication: WALDENSTROM'S MACROGLOBULINAEMIA
     Dosage: 40 MG, CYCLIC
     Route: 042
  4. RITUXIMAB [Suspect]
     Indication: WALDENSTROM'S MACROGLOBULINAEMIA
     Dosage: 375 MG/M2, CYCLIC
     Route: 042
  5. VALACYCLOVIR [Concomitant]
     Indication: PROPHYLAXIS

REACTIONS (1)
  - DEATH [None]
